FAERS Safety Report 4414168-4 (Version None)
Quarter: 2004Q3

REPORT INFORMATION
  Report Type: 
  Country: None (occurrence: None)
  Receive Date: 20040728
  Receipt Date: 20040722
  Transmission Date: 20050211
  Serious: No
  Sender: FDA-Public Use
  Company Number: D01200402423

PATIENT
  Age: 77 Year
  Sex: Male

DRUGS (11)
  1. (FONDARAPINUX) - SOLUTION - UNIT DOSE : UNKNOWN [Suspect]
     Indication: ANGINA UNSTABLE
     Dosage: 2.5 MG QD
     Route: 058
     Dates: start: 20030907, end: 20030909
  2. ASPIRIN [Concomitant]
  3. ASCORBIC ACID [Concomitant]
  4. MULTI-VITAMIN [Concomitant]
  5. METOPROLOL [Concomitant]
  6. INSULIN REG HUMAN (INSULIN) [Concomitant]
  7. LISINOPRIL [Concomitant]
  8. CARVEDILOL [Concomitant]
  9. SIMVASTATIN [Concomitant]
  10. GLIMEPIRIDE [Concomitant]
  11. POTASSIUM CHLORIDE [Concomitant]

REACTIONS (1)
  - CATHETER RELATED COMPLICATION [None]
